FAERS Safety Report 7308702-4 (Version None)
Quarter: 2011Q1

REPORT INFORMATION
  Report Type: 
  Country: None (occurrence: None)
  Receive Date: 20110211
  Receipt Date: 20110131
  Transmission Date: 20110831
  Serious: Yes (Life-Threatening)
  Sender: FDA-Public Use
  Company Number: 2011MA001013

PATIENT
  Age: 39 Year
  Sex: Female

DRUGS (12)
  1. ALENDRONIC ACID [Concomitant]
  2. MYCOPHENOLIC ACID [Concomitant]
  3. FOLIC ACID [Concomitant]
  4. SULFATRIM [Suspect]
     Indication: PNEUMOCYSTIS JIROVECI PNEUMONIA
     Dosage: 288 MG;QID;PO
     Route: 048
     Dates: start: 20101202
  5. SIMVASTATIN [Concomitant]
  6. LANSOPRAZOLE [Concomitant]
  7. CALCEOS [Concomitant]
  8. CYCLIZINE [Concomitant]
  9. PREDNISOLONE [Concomitant]
  10. CITALOPRAM HYDROBROMIDE TABLETS (PUREPAC) [Concomitant]
  11. PREV MEDS [Concomitant]
  12. ACYCLOVIR [Concomitant]

REACTIONS (2)
  - HYPERKALAEMIA [None]
  - HALLUCINATIONS, MIXED [None]
